FAERS Safety Report 15861194 (Version 1)
Quarter: 2019Q1

REPORT INFORMATION
  Report Type: Report from Study
  Country: US (occurrence: US)
  Receive Date: 20190124
  Receipt Date: 20190124
  Transmission Date: 20190417
  Serious: No
  Sender: FDA-Public Use
  Company Number: US-IPSEN BIOPHARMACEUTICALS, INC.-2019-00823

PATIENT
  Age: 44 Year
  Sex: Female
  Weight: 77.7 kg

DRUGS (6)
  1. DYSPORT [Suspect]
     Active Substance: ABOBOTULINUMTOXINA
     Indication: TEMPOROMANDIBULAR JOINT SYNDROME
     Dosage: UNKNWON
     Route: 065
     Dates: start: 20181217, end: 20181217
  2. BACLOFEN. [Concomitant]
     Active Substance: BACLOFEN
  3. CYMBALTA [Concomitant]
     Active Substance: DULOXETINE HYDROCHLORIDE
  4. DYSPORT [Suspect]
     Active Substance: ABOBOTULINUMTOXINA
     Indication: OFF LABEL USE
  5. VITAMIN D [Concomitant]
     Active Substance: CHOLECALCIFEROL
  6. TRAZODONE [Concomitant]
     Active Substance: TRAZODONE HYDROCHLORIDE

REACTIONS (2)
  - Facial paresis [Not Recovered/Not Resolved]
  - Intentional product use issue [Unknown]

NARRATIVE: CASE EVENT DATE: 20181221
